FAERS Safety Report 5182916-4 (Version None)
Quarter: 2006Q4

REPORT INFORMATION
  Report Type: 
  Country: None (occurrence: None)
  Receive Date: 20061220
  Receipt Date: 20060227
  Transmission Date: 20070319
  Serious: Yes (Other)
  Sender: FDA-Public Use
  Company Number: US-AVENTIS-200612109US

PATIENT
  Sex: Female

DRUGS (3)
  1. LOVENOX [Suspect]
     Route: 058
     Dates: start: 20060219, end: 20060412
  2. PRENATAL VITAMINS                  /01549301/ [Concomitant]
     Dosage: DOSE: UNK
  3. ASPIRIN [Concomitant]

REACTIONS (3)
  - ABORTION SPONTANEOUS [None]
  - DRUG EXPOSURE DURING PREGNANCY [None]
  - TRISOMY 22 [None]
